FAERS Safety Report 4760803-0 (Version None)
Quarter: 2005Q3

REPORT INFORMATION
  Report Type: 
  Country: None (occurrence: None)
  Receive Date: 20050826
  Receipt Date: 20041014
  Transmission Date: 20060218
  Serious: Yes (Other)
  Sender: FDA-Public Use
  Company Number: USA-2004-0016660

PATIENT
  Age: 81 Year
  Sex: Female

DRUGS (1)
  1. OXYCONTIN [Suspect]
     Indication: PAIN
     Dosage: 80 MG, Q12H,

REACTIONS (3)
  - DRUG ABUSER [None]
  - DRUG SCREEN NEGATIVE [None]
  - TREATMENT NONCOMPLIANCE [None]
